FAERS Safety Report 8897701 (Version 1)
Quarter: 2012Q4

REPORT INFORMATION
  Report Type: 
  Country: US (occurrence: US)
  Receive Date: 20121108
  Receipt Date: 20121108
  Transmission Date: 20130627
  Serious: No
  Sender: FDA-Public Use
  Company Number: US-AMGEN-USASP2012030655

PATIENT
  Age: 22 Year
  Sex: Female
  Weight: 52.61 kg

DRUGS (3)
  1. ENBREL [Suspect]
     Indication: ANKYLOSING SPONDYLITIS
     Dosage: 50 mg, qwk
     Route: 058
     Dates: start: 20110801, end: 20120326
  2. ENBREL [Suspect]
     Dates: start: 20110922, end: 20120301
  3. ALLEGRA [Concomitant]
     Dosage: UNK

REACTIONS (3)
  - Urticaria [Recovered/Resolved]
  - Rash pruritic [Recovered/Resolved]
  - Rash erythematous [Recovered/Resolved]
